FAERS Safety Report 9998161 (Version 1)
Quarter: 2014Q1

REPORT INFORMATION
  Report Type: Spontaneous
  Country: JP (occurrence: JP)
  Receive Date: 20140311
  Receipt Date: 20140311
  Transmission Date: 20141002
  Serious: Yes (Other)
  Sender: FDA-Public Use
  Company Number: JP-B.I. PHARMACEUTICALS,INC./RIDGEFIELD-2014-BI-10688NB

PATIENT
  Age: 84 Year
  Sex: Male
  Weight: 54.4 kg

DRUGS (5)
  1. PRAZAXA [Suspect]
     Indication: ATRIAL FIBRILLATION
     Dosage: 220 MG
     Route: 048
     Dates: start: 20120905
  2. IRBETAN [Concomitant]
     Dosage: 50 MG
     Route: 048
  3. LUPRAC [Concomitant]
     Dosage: 4 MG
     Route: 048
  4. MAINTATE [Concomitant]
     Dosage: 2.5 MG
     Route: 048
  5. VASOLAN [Concomitant]
     Dosage: 40 MG
     Route: 048

REACTIONS (1)
  - Embolic stroke [Unknown]
